FAERS Safety Report 15515622 (Version 2)
Quarter: 2018Q4

REPORT INFORMATION
  Report Type: Report from Study
  Country: HU (occurrence: HU)
  Receive Date: 20181017
  Receipt Date: 20181116
  Transmission Date: 20190205
  Serious: Yes (Death, Other)
  Sender: FDA-Public Use
  Company Number: PHHY2018HU124924

PATIENT
  Age: 62 Year
  Sex: Female
  Weight: 63 kg

DRUGS (6)
  1. CYCLOPHOSPHAMIDE. [Suspect]
     Active Substance: CYCLOPHOSPHAMIDE
     Indication: SMALL CELL LUNG CANCER
     Dosage: UNK
     Route: 065
     Dates: end: 20180614
  2. EPIRUBICIN [Suspect]
     Active Substance: EPIRUBICIN
     Indication: SMALL CELL LUNG CANCER
     Dosage: UNK
     Route: 065
     Dates: end: 20180614
  3. FUROSEMIDE. [Concomitant]
     Active Substance: FUROSEMIDE
     Indication: PRODUCT USED FOR UNKNOWN INDICATION
     Dosage: 1 DF, QD
     Route: 065
     Dates: start: 20180726
  4. ZARZIO [Suspect]
     Active Substance: FILGRASTIM
     Indication: FEBRILE NEUTROPENIA
     Dosage: QD (1X/DAY; 1 AMPOULE 24 HOURS AFTER TREATMENT FOR 10 DAYS), 48 M UNIT
     Route: 058
     Dates: start: 20180408
  5. VINCRISTINE [Concomitant]
     Active Substance: VINCRISTINE
     Indication: SMALL CELL LUNG CANCER
     Dosage: UNK
     Route: 065
     Dates: end: 20180614
  6. CLEXANE [Concomitant]
     Active Substance: ENOXAPARIN SODIUM
     Indication: THROMBOSIS PROPHYLAXIS
     Dosage: 1 DF, UNK
     Route: 065
     Dates: start: 20170106

REACTIONS (16)
  - Bronchial carcinoma [Unknown]
  - Lung neoplasm malignant [Unknown]
  - Concomitant disease aggravated [Unknown]
  - Superior vena cava syndrome [Fatal]
  - Pain [Unknown]
  - Brain oedema [Fatal]
  - Anaemia [Unknown]
  - Condition aggravated [Fatal]
  - Metastasis [Fatal]
  - Inferior vena cava syndrome [Fatal]
  - Neoplasm malignant [Unknown]
  - Nausea [Unknown]
  - Small cell lung cancer [Fatal]
  - Altered state of consciousness [Fatal]
  - Metastases to liver [Unknown]
  - Metastases to the mediastinum [Unknown]

NARRATIVE: CASE EVENT DATE: 20180626
